FAERS Safety Report 18706486 (Version 1)
Quarter: 2021Q1

REPORT INFORMATION
  Report Type: Spontaneous
  Country: US (occurrence: US)
  Receive Date: 20210106
  Receipt Date: 20210106
  Transmission Date: 20210419
  Serious: Yes (Other)
  Sender: FDA-Public Use
  Company Number: None

PATIENT
  Age: 37 Year
  Sex: Male
  Weight: 104.4 kg

DRUGS (7)
  1. SIMVASTATIN (GENERIC) [Concomitant]
  2. TRAZODONE [Suspect]
     Active Substance: TRAZODONE HYDROCHLORIDE
     Indication: PANIC DISORDER
     Dosage: ?          QUANTITY:0.5 TABLET(S);?
     Route: 048
     Dates: start: 20200129, end: 20210106
  3. CITALOPRAM (GENERIC) [Concomitant]
  4. ALBUTEROL INHALER [Concomitant]
     Active Substance: ALBUTEROL
  5. NATURE MADE DAILY COMPLETE MULTIVITAMIN [Concomitant]
  6. TRAZODONE [Suspect]
     Active Substance: TRAZODONE HYDROCHLORIDE
     Indication: INSOMNIA
     Dosage: ?          QUANTITY:0.5 TABLET(S);?
     Route: 048
     Dates: start: 20200129, end: 20210106
  7. TRAZODONE [Suspect]
     Active Substance: TRAZODONE HYDROCHLORIDE
     Indication: ANXIETY
     Dosage: ?          QUANTITY:0.5 TABLET(S);?
     Route: 048
     Dates: start: 20200129, end: 20210106

REACTIONS (3)
  - Insomnia [None]
  - Anxiety [None]
  - Product quality issue [None]

NARRATIVE: CASE EVENT DATE: 20210106
